FAERS Safety Report 10334017 (Version 3)
Quarter: 2015Q4

REPORT INFORMATION
  Report Type: Report from Study
  Country: ES (occurrence: ES)
  Receive Date: 20140723
  Receipt Date: 20151110
  Transmission Date: 20160304
  Serious: Yes (Death, Hospitalization)
  Sender: FDA-Public Use
  Company Number: ES-ROCHE-1434460

PATIENT
  Age: 71 Year
  Sex: Male
  Weight: 56 kg

DRUGS (6)
  1. PACLITAXEL. [Suspect]
     Active Substance: PACLITAXEL
     Indication: LUNG NEOPLASM MALIGNANT
     Route: 042
     Dates: start: 20140610, end: 20140703
  2. CARBOPLATIN. [Suspect]
     Active Substance: CARBOPLATIN
     Indication: LUNG NEOPLASM MALIGNANT
     Route: 042
     Dates: start: 20140610, end: 20140703
  3. OMEPRAZOLE. [Concomitant]
     Active Substance: OMEPRAZOLE
     Indication: PROPHYLAXIS
     Route: 048
     Dates: start: 20140610
  4. FORTECORTIN [Concomitant]
     Active Substance: DEXAMETHASONE
     Indication: EPILEPSY
     Route: 048
     Dates: start: 20140610
  5. AVASTIN [Suspect]
     Active Substance: BEVACIZUMAB
     Indication: LUNG NEOPLASM MALIGNANT
     Route: 042
     Dates: start: 20140610, end: 20140703
  6. LEVETIRACETAM. [Concomitant]
     Active Substance: LEVETIRACETAM
     Indication: EPILEPSY
     Route: 048

REACTIONS (9)
  - Acute kidney injury [Not Recovered/Not Resolved]
  - Abdominal pain [Not Recovered/Not Resolved]
  - Respiratory failure [Not Recovered/Not Resolved]
  - Leukopenia [Not Recovered/Not Resolved]
  - Neutropenia [Not Recovered/Not Resolved]
  - Intestinal ischaemia [Fatal]
  - Gangrene [Fatal]
  - Septic shock [Not Recovered/Not Resolved]
  - Hypotension [Not Recovered/Not Resolved]

NARRATIVE: CASE EVENT DATE: 20140709
